FAERS Safety Report 5278095-5 (Version None)
Quarter: 2007Q1

REPORT INFORMATION
  Report Type: 
  Country: None (occurrence: None)
  Receive Date: 20061213
  Receipt Date: 20051031
  Transmission Date: 20070707
  Serious: Yes (Hospitalization)
  Sender: FDA-Public Use
  Company Number: 2005UW16479

PATIENT
  Sex: Female

DRUGS (3)
  1. SEROQUEL [Suspect]
     Dosage: 50 MG DAILY PO
     Route: 048
     Dates: start: 20040101
  2. LITHIUM CARBONATE [Concomitant]
  3. SYMBALTA [Concomitant]

REACTIONS (1)
  - TREMOR [None]
